FAERS Safety Report 24829614 (Version 1)
Quarter: 2025Q1

REPORT INFORMATION
  Report Type: Report from Study
  Country: US (occurrence: US)
  Receive Date: 20250110
  Receipt Date: 20250110
  Transmission Date: 20250408
  Serious: Yes (Other)
  Sender: AMGEN
  Company Number: US-AMGEN-HZN-2022-005521

PATIENT
  Age: 33 Year
  Sex: Female
  Weight: 66 kg

DRUGS (3)
  1. TEPEZZA [Suspect]
     Active Substance: TEPROTUMUMAB-TRBW
     Indication: Toxic goitre
     Route: 042
     Dates: start: 20220720
  2. TEPEZZA [Suspect]
     Active Substance: TEPROTUMUMAB-TRBW
     Route: 042
     Dates: start: 202301
  3. DOXYCYCLINE [Concomitant]
     Active Substance: DOXYCYCLINE
     Route: 065

REACTIONS (14)
  - Inflammatory bowel disease [Recovered/Resolved]
  - Endocrine ophthalmopathy [Unknown]
  - Somnolence [Unknown]
  - Lethargy [Unknown]
  - Feeding disorder [Unknown]
  - Dyspepsia [Unknown]
  - Gastrooesophageal reflux disease [Unknown]
  - Vomiting [Unknown]
  - Condition aggravated [Unknown]
  - Migraine [Unknown]
  - Extra dose administered [Unknown]
  - Gastrointestinal disorder [Unknown]
  - Nausea [Unknown]
  - Alopecia [Unknown]

NARRATIVE: CASE EVENT DATE: 20220101
